FAERS Safety Report 14564764 (Version 1)
Quarter: 2018Q1

REPORT INFORMATION
  Report Type: Spontaneous
  Country: CZ (occurrence: CZ)
  Receive Date: 20180222
  Receipt Date: 20180222
  Transmission Date: 20180509
  Serious: Yes (Other)
  Sender: FDA-Public Use
  Company Number: CZ-ABBVIE-18K-217-2267054-00

PATIENT
  Age: 7 Year
  Sex: Male

DRUGS (1)
  1. HUMIRA [Suspect]
     Active Substance: ADALIMUMAB
     Indication: CROHN^S DISEASE
     Route: 058
     Dates: start: 20171220

REACTIONS (7)
  - Disturbance in attention [Unknown]
  - Off label use [Unknown]
  - Mood altered [Unknown]
  - Depression [Unknown]
  - Crying [Unknown]
  - Mood swings [Unknown]
  - Anger [Unknown]
